FAERS Safety Report 14265707 (Version 3)
Quarter: 2018Q2

REPORT INFORMATION
  Report Type: Spontaneous
  Country: RO (occurrence: RO)
  Receive Date: 20171208
  Receipt Date: 20180529
  Transmission Date: 20180711
  Serious: Yes (Other)
  Sender: FDA-Public Use
  Company Number: RO-BAUSCH-BL-2017-032870

PATIENT
  Age: 29 Year
  Sex: Female

DRUGS (10)
  1. GENTAMICIN. [Suspect]
     Active Substance: GENTAMICIN
     Indication: STAPHYLOCOCCAL INFECTION
     Route: 065
  2. CAVINTON [Suspect]
     Active Substance: VINPOCETINE
     Indication: DIZZINESS
     Route: 065
  3. OXACILLIN [Suspect]
     Active Substance: OXACILLIN SODIUM
     Indication: STAPHYLOCOCCAL INFECTION
     Route: 065
  4. GENTAMICIN. [Suspect]
     Active Substance: GENTAMICIN
     Indication: STAPHYLOCOCCAL INFECTION
     Route: 065
  5. CIPRINOL [Suspect]
     Active Substance: CIPROFLOXACIN
     Indication: STAPHYLOCOCCAL INFECTION
     Route: 065
  6. STUGERON 25MG COMPRIMATE [Suspect]
     Active Substance: CINNARIZINE
     Indication: DIZZINESS
     Dosage: COMPRESSED
     Route: 065
  7. BETASERC [Suspect]
     Active Substance: BETAHISTINE
     Indication: DIZZINESS
     Route: 065
  8. GENTAMICIN. [Suspect]
     Active Substance: GENTAMICIN
     Route: 065
  9. NORVASC [Concomitant]
     Active Substance: AMLODIPINE BESYLATE
     Indication: HYPERTENSION
     Route: 065
  10. OXACILLIN [Suspect]
     Active Substance: OXACILLIN SODIUM
     Route: 065

REACTIONS (2)
  - Dizziness [Not Recovered/Not Resolved]
  - Drug ineffective [Unknown]
